FAERS Safety Report 7340455-6 (Version None)
Quarter: 2011Q1

REPORT INFORMATION
  Report Type: 
  Country: None (occurrence: None)
  Receive Date: 20110309
  Receipt Date: 20110210
  Transmission Date: 20110831
  Serious: No
  Sender: FDA-Public Use
  Company Number: US-B.I. PHARMACEUTICALS,INC./RIDGEFIELD-2011-BP-00537BP

PATIENT
  Sex: Male

DRUGS (11)
  1. LEVOTHYROXINE [Concomitant]
     Indication: HYPOTHYROIDISM
     Dosage: 0.025 MG
  2. SOTALOL HYDROCHLORIDE [Concomitant]
     Indication: DRUG THERAPY
  3. ERGOCALCIFEROL (VITAMIN D) [Concomitant]
     Indication: PROPHYLAXIS
  4. LOVASTATIN [Concomitant]
     Indication: BLOOD CHOLESTEROL INCREASED
     Dosage: 20 MG
  5. DIOVAN [Concomitant]
     Indication: HYPERTENSION
     Dosage: 80 MG
  6. PRADAXA [Suspect]
     Indication: ATRIAL FIBRILLATION
     Dosage: 300 MG
     Route: 048
     Dates: start: 20101231, end: 20110101
  7. KLOR-CON [Concomitant]
     Indication: PROPHYLAXIS
     Dosage: 10 MG
  8. KLOR-CON [Concomitant]
     Indication: MINERAL SUPPLEMENTATION
  9. SOTALOL HYDROCHLORIDE [Concomitant]
     Indication: ATRIAL FIBRILLATION
     Dosage: 240 MG
  10. PRADAXA [Suspect]
     Indication: ANTICOAGULANT THERAPY
  11. FUROSEMIDE [Concomitant]
     Indication: FLUID RETENTION
     Dosage: 10 MG

REACTIONS (3)
  - BLOOD URINE PRESENT [None]
  - ABDOMINAL PAIN UPPER [None]
  - OESOPHAGEAL PAIN [None]
